FAERS Safety Report 8244825-3 (Version None)
Quarter: 2012Q1

REPORT INFORMATION
  Report Type: 
  Country: None (occurrence: None)
  Receive Date: 20120329
  Receipt Date: 20110523
  Transmission Date: 20120608
  Serious: No
  Sender: FDA-Public Use
  Company Number: US-MYLANLABS-2011S1010712

PATIENT
  Sex: Female

DRUGS (5)
  1. OXYCODONE AND ACETAMINOPHEN [Concomitant]
     Dosage: 10/325 MG
  2. JANUMET [Concomitant]
  3. LEXAPRO [Concomitant]
  4. FENTANYL-100 [Suspect]
     Indication: BACK PAIN
     Dosage: Q72
     Route: 062
     Dates: start: 20110519
  5. VALIUM [Concomitant]

REACTIONS (3)
  - BLOOD GLUCOSE INCREASED [None]
  - TREMOR [None]
  - INSOMNIA [None]
